FAERS Safety Report 23799537 (Version 1)
Quarter: 2024Q2

REPORT INFORMATION
  Report Type: Spontaneous
  Country: US (occurrence: None)
  Receive Date: 20240428
  Receipt Date: 20240428
  Transmission Date: 20240715
  Serious: Yes (Other)
  Sender: FDA-Public Use
  Company Number: None

PATIENT
  Age: 29 Year
  Sex: Female
  Weight: 72 kg

DRUGS (2)
  1. EMGALITY [Suspect]
     Active Substance: GALCANEZUMAB-GNLM
     Indication: Migraine
     Dates: start: 20240414, end: 20240414
  2. RIZALTRIPTAN [Concomitant]

REACTIONS (3)
  - Headache [None]
  - Depression [None]
  - Irritability [None]

NARRATIVE: CASE EVENT DATE: 20240415
